FAERS Safety Report 17946594 (Version 2)
Quarter: 2020Q3

REPORT INFORMATION
  Report Type: Spontaneous
  Country: US (occurrence: US)
  Receive Date: 20200626
  Receipt Date: 20200908
  Transmission Date: 20201103
  Serious: No
  Sender: FDA-Public Use
  Company Number: US-BIOGEN-2013BI053928

PATIENT
  Age: 47 Year
  Sex: Female

DRUGS (1)
  1. TYSABRI [Suspect]
     Active Substance: NATALIZUMAB
     Indication: MULTIPLE SCLEROSIS
     Dosage: INFUSED OVER 1 HOUR
     Route: 042
     Dates: start: 20070919

REACTIONS (4)
  - Nerve compression [Recovered/Resolved]
  - Muscle spasms [Unknown]
  - Sciatica [Unknown]
  - Back disorder [Unknown]

NARRATIVE: CASE EVENT DATE: 20130601
